FAERS Safety Report 7964376-0 (Version None)
Quarter: 2011Q4

REPORT INFORMATION
  Report Type: 
  Country: None (occurrence: None)
  Receive Date: 20111208
  Receipt Date: 20111205
  Transmission Date: 20120403
  Serious: Yes (Death, Hospitalization)
  Sender: FDA-Public Use
  Company Number: PE-PFIZER INC-2011288377

PATIENT
  Age: 91 Year
  Sex: Female

DRUGS (1)
  1. XALATAN [Suspect]
     Indication: GLAUCOMA
     Dosage: 0.03 MG, 2X/DAY
     Route: 047
     Dates: start: 20080101, end: 20110901

REACTIONS (4)
  - CEREBROVASCULAR ACCIDENT [None]
  - FEMUR FRACTURE [None]
  - PAIN IN EXTREMITY [None]
  - DECREASED APPETITE [None]
